FAERS Safety Report 5914568-7 (Version None)
Quarter: 2008Q4

REPORT INFORMATION
  Report Type: 
  Country: None (occurrence: None)
  Receive Date: 20081010
  Receipt Date: 20081003
  Transmission Date: 20090506
  Serious: Yes (Other)
  Sender: FDA-Public Use
  Company Number: US-RANBAXY-2008RR-18447

PATIENT
  Age: 66 Year
  Sex: Female

DRUGS (8)
  1. FENOFIBRATE TABLETS [Suspect]
     Indication: HYPERTRIGLYCERIDAEMIA
  2. ROSIGLITAZONE [Suspect]
  3. ASPIRIN [Concomitant]
  4. METOPROLOL TARTRATE [Concomitant]
  5. METFORMIN HCL [Concomitant]
     Indication: HYPERTRIGLYCERIDAEMIA
  6. FLUVASTATIN [Concomitant]
  7. HYDROCHLOROTHIAZIDE [Concomitant]
  8. PIOGLITAZONE [Concomitant]

REACTIONS (2)
  - DRUG INTERACTION [None]
  - HIGH DENSITY LIPOPROTEIN DECREASED [None]
